FAERS Safety Report 5822509-6 (Version None)
Quarter: 2008Q3

REPORT INFORMATION
  Report Type: 
  Country: None (occurrence: None)
  Receive Date: 20080725
  Receipt Date: 20071206
  Transmission Date: 20090109
  Serious: Yes (Other)
  Sender: FDA-Public Use
  Company Number: US-AMGEN-US255580

PATIENT
  Sex: Female

DRUGS (9)
  1. PROCRIT [Suspect]
     Indication: ANAEMIA OF MALIGNANT DISEASE
  2. REVLIMID [Suspect]
     Route: 048
     Dates: start: 20070401, end: 20070501
  3. DECADRON [Concomitant]
     Indication: MULTIPLE MYELOMA
  4. LISINOPRIL [Concomitant]
  5. ALPRAZOLAM [Concomitant]
  6. LIPITOR [Concomitant]
  7. PEPCID [Concomitant]
  8. ASPIRIN [Concomitant]
  9. COUMADIN [Concomitant]

REACTIONS (1)
  - DEEP VEIN THROMBOSIS [None]
